FAERS Safety Report 11576336 (Version 1)
Quarter: 2015Q3

REPORT INFORMATION
  Report Type: Spontaneous
  Country: US (occurrence: None)
  Receive Date: 20150929
  Receipt Date: 20150929
  Transmission Date: 20151125
  Serious: Yes (Other)
  Sender: FDA-Public Use
  Company Number: None

PATIENT
  Age: 55 Year
  Sex: Female
  Weight: 81.65 kg

DRUGS (15)
  1. GLIPIZIDE. [Concomitant]
     Active Substance: GLIPIZIDE
  2. LANTUS [Suspect]
     Active Substance: INSULIN GLARGINE
     Indication: DIABETES MELLITUS
     Dosage: 24 UNITS ONCE PER DAY GIVEN INTO/UNDER THE SKIN
     Dates: start: 20150922
  3. COZAAR [Concomitant]
     Active Substance: LOSARTAN POTASSIUM
  4. LANTUS [Concomitant]
     Active Substance: INSULIN GLARGINE
  5. ASMANEX [Concomitant]
     Active Substance: MOMETASONE FUROATE
  6. LEVOTHYROXINE. [Concomitant]
     Active Substance: LEVOTHYROXINE
  7. METHYLPHENIDATE ER [Concomitant]
     Active Substance: METHYLPHENIDATE
  8. METFORMIN [Concomitant]
     Active Substance: METFORMIN HYDROCHLORIDE
  9. BENADRYL [Concomitant]
     Active Substance: DIPHENHYDRAMINE HYDROCHLORIDE
  10. ATENOLOL. [Concomitant]
     Active Substance: ATENOLOL
  11. PERCOCET [Concomitant]
     Active Substance: ACETAMINOPHEN\OXYCODONE HYDROCHLORIDE
  12. GOLD BOND RELIEF CREAM [Concomitant]
  13. AMYLOIDIPINE [Concomitant]
  14. LIPITOR [Concomitant]
     Active Substance: ATORVASTATIN CALCIUM
  15. FENTANYL PATICHES [Concomitant]

REACTIONS (6)
  - Swelling [None]
  - Rash pruritic [None]
  - Erythema [None]
  - No therapeutic response [None]
  - Rash [None]
  - Feeling hot [None]

NARRATIVE: CASE EVENT DATE: 20150923
